FAERS Safety Report 4474812-2 (Version None)
Quarter: 2004Q4

REPORT INFORMATION
  Report Type: 
  Country: None (occurrence: None)
  Receive Date: 20041012
  Receipt Date: 20041004
  Transmission Date: 20050328
  Serious: Yes (Hospitalization, Other)
  Sender: FDA-Public Use
  Company Number: 2002-07-0006

PATIENT
  Age: 41 Year
  Sex: Female
  Weight: 46 kg

DRUGS (3)
  1. VIRAFERONPEG [Suspect]
     Dosage: 80 MCG QW SUBCUTANEOUS
     Route: 058
     Dates: start: 20010521, end: 20020422
  2. REBETOL [Suspect]
     Dosage: 600 MG QD ORAL
     Route: 048
     Dates: start: 20010521, end: 20020422
  3. LEVOTHYROX [Concomitant]

REACTIONS (13)
  - ABDOMINAL PAIN UPPER [None]
  - ANAEMIA [None]
  - ANXIETY [None]
  - CARDIAC ANEURYSM [None]
  - CORONARY ARTERY OCCLUSION [None]
  - CORONARY ARTERY STENOSIS [None]
  - DEPRESSION [None]
  - MYOCARDIAL INFARCTION [None]
  - NERVOUSNESS [None]
  - PERICARDIAL EFFUSION [None]
  - PULMONARY HYPERTENSION [None]
  - TRICUSPID VALVE INCOMPETENCE [None]
  - VENTRICULAR HYPOKINESIA [None]
